FAERS Safety Report 13431179 (Version 1)
Quarter: 2017Q2

REPORT INFORMATION
  Report Type: Spontaneous
  Country: US (occurrence: US)
  Receive Date: 20170412
  Receipt Date: 20170412
  Transmission Date: 20170830
  Serious: Yes (Other)
  Sender: FDA-Public Use
  Company Number: None

PATIENT
  Age: 72 Year
  Sex: Female
  Weight: 65.83 kg

DRUGS (19)
  1. CRESTOR [Concomitant]
     Active Substance: ROSUVASTATIN CALCIUM
  2. SERUM TEARS [Concomitant]
  3. DIR REFRESH/REFRESH PLUS PM [Concomitant]
  4. DOXYCYCLINE HYCLATE. [Concomitant]
     Active Substance: DOXYCYCLINE HYCLATE
  5. AMLODIPINE [Concomitant]
     Active Substance: AMLODIPINE BESYLATE
  6. VITAMIN C [Concomitant]
     Active Substance: ASCORBIC ACID
  7. RAMIPRIL. [Concomitant]
     Active Substance: RAMIPRIL
  8. SYNTHROID [Concomitant]
     Active Substance: LEVOTHYROXINE SODIUM
  9. TRAZODONE [Concomitant]
     Active Substance: TRAZODONE HYDROCHLORIDE
  10. TRIAMTERENE AND HYDROCHLOROTHIAZIDE [Concomitant]
     Active Substance: HYDROCHLOROTHIAZIDE\TRIAMTERENE
  11. CENTRUM SILVER MULTI VIT. [Concomitant]
  12. VENLAFAXINE [Concomitant]
     Active Substance: VENLAFAXINE HYDROCHLORIDE
  13. PERCOCET [Concomitant]
     Active Substance: ACETAMINOPHEN\OXYCODONE HYDROCHLORIDE
  14. FIRST. MOUTHWASH SUSP. [Concomitant]
  15. VITAMIN B12 [Concomitant]
     Active Substance: CYANOCOBALAMIN
  16. XIIDRA [Suspect]
     Active Substance: LIFITEGRAST
     Indication: DRY EYE
     Dosage: 2 DROPS DAILY 1-AM AND 1-PM 1 DROP AM 1 DROP PM DROP IN LEFT EYE
     Dates: start: 20170209, end: 20170210
  17. CLONAZEPAM. [Concomitant]
     Active Substance: CLONAZEPAM
  18. ERYTHROMYCIN OPTH. OINT [Concomitant]
  19. MELQUIN HP 4% CREAM [Concomitant]

REACTIONS (5)
  - Ulcerative keratitis [None]
  - Eye pain [None]
  - Atrophy of globe [None]
  - Blindness unilateral [None]
  - Ocular hyperaemia [None]

NARRATIVE: CASE EVENT DATE: 20170209
